FAERS Safety Report 4977428-4 (Version None)
Quarter: 2006Q2

REPORT INFORMATION
  Report Type: 
  Country: None (occurrence: None)
  Receive Date: 20060413
  Receipt Date: 20060403
  Transmission Date: 20061013
  Serious: Yes (Death)
  Sender: FDA-Public Use
  Company Number: 122-20785-06040211

PATIENT

DRUGS (2)
  1. THALIDOMIDE (THALIDOMIDE) (CAPSULES) [Suspect]
     Indication: CARDIAC FAILURE CHRONIC
     Dosage: 25MG-200MG, DAILY, ORAL
     Route: 048
  2. CARDIOVASCULAR MEDICATION (CARDIOVASCULAR SYSTEM DRUGS) [Concomitant]

REACTIONS (2)
  - SUDDEN DEATH [None]
  - SYNCOPE [None]
